FAERS Safety Report 19274923 (Version 1)
Quarter: 2021Q2

REPORT INFORMATION
  Report Type: Spontaneous
  Country: JP (occurrence: JP)
  Receive Date: 20210519
  Receipt Date: 20210519
  Transmission Date: 20210717
  Serious: Yes (Other)
  Sender: FDA-Public Use
  Company Number: JP-BAYER-2021-139788

PATIENT
  Age: 89 Year
  Sex: Female

DRUGS (1)
  1. EOB PRIMOVIST [Suspect]
     Active Substance: GADOXETATE DISODIUM
     Indication: MAGNETIC RESONANCE IMAGING HEPATOBILIARY
     Dosage: UNK, ONCE

REACTIONS (2)
  - Seizure [None]
  - Coma [None]
